FAERS Safety Report 20850126 (Version 1)
Quarter: 2022Q2

REPORT INFORMATION
  Report Type: Spontaneous
  Country: CN (occurrence: CN)
  Receive Date: 20220519
  Receipt Date: 20220519
  Transmission Date: 20220721
  Serious: Yes (Other)
  Sender: FDA-Public Use
  Company Number: CN-SA-SAC20220517000508

PATIENT
  Age: 4 Year
  Sex: Male
  Weight: 15 kg

DRUGS (3)
  1. THYMOGLOBULINE [Suspect]
     Active Substance: LAPINE T-LYMPHOCYTE IMMUNE GLOBULIN
     Dosage: 15 MG, QD
     Route: 041
     Dates: start: 20220416, end: 20220418
  2. CEFUROXIME SODIUM [Suspect]
     Active Substance: CEFUROXIME SODIUM
     Indication: Infection
     Dosage: 0.5 G, TID
     Route: 041
     Dates: start: 20220414, end: 20220506
  3. SODIUM CHLORIDE [Suspect]
     Active Substance: SODIUM CHLORIDE
     Dosage: 100 ML
     Route: 041

REACTIONS (2)
  - Hyperpyrexia [Recovered/Resolved]
  - Seizure [Recovered/Resolved]

NARRATIVE: CASE EVENT DATE: 20220416
